FAERS Safety Report 20554968 (Version 17)
Quarter: 2022Q3

REPORT INFORMATION
  Report Type: Report from Study
  Country: CN (occurrence: CN)
  Receive Date: 20220304
  Receipt Date: 20220930
  Transmission Date: 20221027
  Serious: Yes (Life-Threatening, Hospitalization, Other)
  Sender: FDA-Public Use
  Company Number: CN-BRISTOL-MYERS SQUIBB COMPANY-BMS-2022-027238

PATIENT
  Age: 66 Year
  Sex: Male
  Weight: 72 kg

DRUGS (26)
  1. PACLITAXEL [Suspect]
     Active Substance: PACLITAXEL
     Indication: Non-small cell lung cancer
     Dosage: RECEIVED ONLY ONE DOSE
     Route: 065
     Dates: start: 20211215, end: 20211215
  2. CARBOPLATIN [Suspect]
     Active Substance: CARBOPLATIN
     Indication: Non-small cell lung cancer
     Route: 065
     Dates: start: 20211215, end: 20220207
  3. CARBOPLATIN [Suspect]
     Active Substance: CARBOPLATIN
     Route: 065
     Dates: start: 20220207, end: 20220207
  4. ETOPOSIDE [Suspect]
     Active Substance: ETOPOSIDE
     Indication: Non-small cell lung cancer
     Route: 065
     Dates: start: 20220108
  5. ETOPOSIDE [Suspect]
     Active Substance: ETOPOSIDE
     Route: 065
     Dates: start: 20220209, end: 20220209
  6. RIVAROXABAN [Concomitant]
     Active Substance: RIVAROXABAN
     Indication: Prophylaxis
     Dosage: EVERY 24 HOURS
     Route: 048
     Dates: start: 20211216, end: 20220218
  7. RIVAROXABAN [Concomitant]
     Active Substance: RIVAROXABAN
     Dosage: EVERY 24 HOURS
     Route: 048
     Dates: start: 20211216
  8. ACARBOSE [Concomitant]
     Active Substance: ACARBOSE
     Indication: Product used for unknown indication
     Dosage: EVERY 8 HOURS
     Route: 048
     Dates: start: 1991, end: 20220217
  9. FELODIPINE [Concomitant]
     Active Substance: FELODIPINE
     Indication: Product used for unknown indication
     Dosage: EVERY 24 HOURS
     Route: 048
     Dates: start: 20220223, end: 20220224
  10. FELODIPINE [Concomitant]
     Active Substance: FELODIPINE
     Route: 048
     Dates: start: 20220312
  11. FELODIPINE [Concomitant]
     Active Substance: FELODIPINE
     Route: 048
     Dates: start: 2007, end: 20220217
  12. PALONOSETRON HYDROCHLORIDE [Concomitant]
     Active Substance: PALONOSETRON HYDROCHLORIDE
     Indication: Product used for unknown indication
     Dosage: EVERY 24 HOURS
     Route: 042
     Dates: start: 20220222, end: 20220228
  13. PALONOSETRON HYDROCHLORIDE [Concomitant]
     Active Substance: PALONOSETRON HYDROCHLORIDE
     Route: 048
     Dates: start: 20220207, end: 20220207
  14. APREPITANT [Concomitant]
     Active Substance: APREPITANT
     Indication: Prophylaxis
     Dosage: EVERY 24 HOURS
     Route: 048
     Dates: start: 20220207, end: 20220209
  15. PERINDOPRIL ERBUMINE [Concomitant]
     Active Substance: PERINDOPRIL ERBUMINE
     Indication: Product used for unknown indication
     Dosage: 8 MILLIGRAM, QD?4MG-23-FEB-2022 TO 24-FEB-2022
     Route: 048
     Dates: start: 2007, end: 20220217
  16. PERINDOPRIL ERBUMINE [Concomitant]
     Active Substance: PERINDOPRIL ERBUMINE
     Route: 048
     Dates: start: 20220223, end: 20220224
  17. INSULIN DETEMIR [Concomitant]
     Active Substance: INSULIN DETEMIR
     Indication: Product used for unknown indication
     Dosage: 1 DOSAGE FORM = 15 UNIT NOS, QD
     Route: 058
     Dates: start: 2007, end: 20220217
  18. INSULIN ASPART [Concomitant]
     Active Substance: INSULIN ASPART
     Indication: Product used for unknown indication
     Dosage: 1 DOSAGE FORM = 23 UNT NOS, QD
     Route: 058
     Dates: start: 2007, end: 20220217
  19. ERYTHROPOIETIN [Concomitant]
     Active Substance: ERYTHROPOIETIN
     Indication: Anaemia
     Dosage: 1 DOSAGE FORM = 1 UNIT NOS, QD?ALSO RECEIVED ON 04 AND 06-FEB-2022
     Route: 058
     Dates: start: 20220202, end: 20220206
  20. ERYTHROPOIETIN [Concomitant]
     Active Substance: ERYTHROPOIETIN
     Dosage: 1 DOSAGE= 1.50 UNIT NOS-ONGOING
     Route: 058
     Dates: start: 20220222
  21. ROXATIDINE ACETATE HYDROCHLORIDE [Concomitant]
     Active Substance: ROXATIDINE ACETATE HYDROCHLORIDE
     Indication: Prophylaxis
     Route: 048
     Dates: start: 20211216, end: 20220218
  22. ROXATIDINE ACETATE HYDROCHLORIDE [Concomitant]
     Active Substance: ROXATIDINE ACETATE HYDROCHLORIDE
     Route: 042
     Dates: start: 20220207, end: 20220209
  23. GLYCYRRHETINIC ACID [Concomitant]
     Indication: Prophylaxis
     Dosage: 1 DF-200 UNIT NOS?GLYCYRRHETINIC ACID MONOAMMONIUM CYSTEINE SODIUM CHLORIDE INJECTION
     Route: 042
     Dates: start: 20220207, end: 20220209
  24. TORSEMIDE [Concomitant]
     Active Substance: TORSEMIDE
     Indication: Prophylaxis
     Route: 042
     Dates: start: 20220207, end: 20220209
  25. HEROMBOPAG OLAMINE [Concomitant]
     Indication: Product used for unknown indication
     Route: 048
     Dates: start: 20220118
  26. MANNITOL [Concomitant]
     Active Substance: MANNITOL
     Indication: Prophylaxis
     Dosage: 1 DF = 250 UNIT NOS
     Route: 042
     Dates: start: 20220207, end: 20220207

REACTIONS (2)
  - Platelet count decreased [Recovered/Resolved]
  - Immune-mediated enterocolitis [Recovered/Resolved]

NARRATIVE: CASE EVENT DATE: 20220216
